FAERS Safety Report 11861596 (Version 2)
Quarter: 2016Q1

REPORT INFORMATION
  Report Type: Spontaneous
  Country: CA (occurrence: CA)
  Receive Date: 20151222
  Receipt Date: 20160113
  Transmission Date: 20160526
  Serious: Yes (Hospitalization)
  Sender: FDA-Public Use
  Company Number: CA-TEVA-620467USA

PATIENT
  Age: 60 Year
  Sex: Male

DRUGS (15)
  1. MIRTAZAPINE. [Suspect]
     Active Substance: MIRTAZAPINE
     Indication: DEPRESSION
     Route: 065
  2. QUETIAPINE [Concomitant]
     Active Substance: QUETIAPINE
     Indication: DEPRESSION
  3. LAMOTRIGINE. [Concomitant]
     Active Substance: LAMOTRIGINE
     Indication: DEPRESSION
  4. QUETIAPINE [Concomitant]
     Active Substance: QUETIAPINE
     Indication: DEPRESSION
  5. ZOPICLONE [Concomitant]
     Active Substance: ZOPICLONE
     Indication: DEPRESSION
  6. BUPROPION. [Suspect]
     Active Substance: BUPROPION
     Indication: DEPRESSION
     Route: 065
  7. LAMOTRIGINE. [Concomitant]
     Active Substance: LAMOTRIGINE
     Indication: DEPRESSION
  8. METHOTRIMEPRAZINE [Concomitant]
     Active Substance: LEVOMEPROMAZINE
     Indication: DEPRESSION
  9. QUETIAPINE [Concomitant]
     Active Substance: QUETIAPINE
     Indication: DEPRESSION
  10. VENLAFAXINE [Suspect]
     Active Substance: VENLAFAXINE HYDROCHLORIDE
     Indication: DEPRESSION
     Route: 065
  11. LITHIUM CARBONATE. [Concomitant]
     Active Substance: LITHIUM CARBONATE
     Indication: DEPRESSION
  12. NORTRIPTYLINE [Suspect]
     Active Substance: NORTRIPTYLINE
     Indication: DEPRESSION
  13. METHOTRIMEPRAZINE [Concomitant]
     Active Substance: LEVOMEPROMAZINE
     Indication: DEPRESSION
  14. ZOPICLONE [Concomitant]
     Active Substance: ZOPICLONE
     Indication: DEPRESSION
  15. LITHIUM CARBONATE. [Concomitant]
     Active Substance: LITHIUM CARBONATE
     Indication: DEPRESSION

REACTIONS (4)
  - Depression [Recovered/Resolved]
  - Mania [Recovered/Resolved]
  - Major depression [Recovered/Resolved]
  - Suicide attempt [Recovered/Resolved]
